FAERS Safety Report 7374772-0 (Version None)
Quarter: 2011Q1

REPORT INFORMATION
  Report Type: 
  Country: None (occurrence: None)
  Receive Date: 20110325
  Receipt Date: 20101112
  Transmission Date: 20110831
  Serious: Yes (Other)
  Sender: FDA-Public Use
  Company Number: US-MYLANLABS-2010S1019882

PATIENT
  Age: 52 Year
  Sex: Male

DRUGS (8)
  1. FENTANYL-100 [Suspect]
     Dosage: Q72H
     Route: 062
     Dates: start: 20101014, end: 20101023
  2. FENTANYL-100 [Suspect]
     Dosage: Q72H
     Route: 062
     Dates: start: 20101001
  3. FENTANYL-100 [Suspect]
     Indication: SPINAL DEFORMITY
     Dosage: Q72H
     Route: 062
     Dates: start: 20101001, end: 20101013
  4. FENTANYL-100 [Suspect]
     Indication: RHEUMATOID ARTHRITIS
     Dosage: Q72H
     Route: 062
     Dates: start: 20101001, end: 20101013
  5. TRAZODONE [Concomitant]
     Indication: ANXIETY
     Dosage: 1-2 TABLETS IN THE EVENING
     Route: 048
  6. FENTANYL-100 [Suspect]
     Dosage: Q72H
     Route: 062
     Dates: start: 20101001
  7. FENTANYL-100 [Suspect]
     Dosage: Q72H
     Route: 062
     Dates: start: 20101014, end: 20101023
  8. SOMA [Concomitant]

REACTIONS (4)
  - NAUSEA [None]
  - WRONG TECHNIQUE IN DRUG USAGE PROCESS [None]
  - DRUG EFFECT INCREASED [None]
  - DRUG WITHDRAWAL SYNDROME [None]
